FAERS Safety Report 9667818 (Version 1)
Quarter: 2013Q4

REPORT INFORMATION
  Report Type: Spontaneous
  Country: US (occurrence: None)
  Receive Date: 20131101
  Receipt Date: 20131101
  Transmission Date: 20140711
  Serious: Yes (Other)
  Sender: FDA-Public Use
  Company Number: 2013AT000126

PATIENT
  Sex: Male
  Weight: 108.86 kg

DRUGS (1)
  1. TESTOPEL [Suspect]
     Indication: PRODUCT USED FOR UNKNOWN INDICATION
     Dates: start: 201303

REACTIONS (6)
  - Product quality issue [None]
  - Implant site infection [None]
  - Implant site pain [None]
  - Implant site swelling [None]
  - Pain [None]
  - Device extrusion [None]
